FAERS Safety Report 8557493-8 (Version None)
Quarter: 2012Q3

REPORT INFORMATION
  Report Type: 
  Country: None (occurrence: None)
  Receive Date: 20120801
  Receipt Date: 20120706
  Transmission Date: 20120928
  Serious: Yes (Other)
  Sender: FDA-Public Use
  Company Number: JP-009507513-1207JPN000626

PATIENT

DRUGS (10)
  1. NORVASC [Concomitant]
     Indication: HYPERTENSION
     Route: 048
  2. DEPAS [Concomitant]
     Indication: DEPRESSION
     Route: 048
  3. INTERFERON BETA NOS [Suspect]
     Indication: HEPATITIS C
     Route: 041
     Dates: start: 20091105, end: 20091201
  4. INTERFERON BETA NOS [Suspect]
     Route: 042
     Dates: start: 20091203
  5. THEOLONG [Concomitant]
     Indication: ASTHMA
     Route: 048
  6. LENDORMIN [Concomitant]
     Indication: INSOMNIA
     Route: 048
  7. REBETOL [Suspect]
     Indication: HEPATITIS C
     Dosage: 200MG IN THE EVENING AND 400MG IN THE MORNING
     Route: 048
     Dates: start: 20091105
  8. FLUVASTATIN [Concomitant]
     Indication: HEPATITIS C
     Route: 048
     Dates: start: 20091105
  9. FAMOTIDINE [Concomitant]
     Indication: GASTRIC ULCER
     Route: 048
     Dates: start: 20091112
  10. HALCION [Concomitant]
     Indication: INSOMNIA
     Route: 048

REACTIONS (9)
  - PLATELET COUNT DECREASED [None]
  - ANAEMIA [None]
  - PYREXIA [None]
  - HYPOKALAEMIA [None]
  - DEPRESSION [None]
  - WHITE BLOOD CELL COUNT DECREASED [None]
  - HYPOALBUMINAEMIA [None]
  - PROTEINURIA [None]
  - ANXIETY [None]
